FAERS Safety Report 23751709 (Version 1)
Quarter: 2024Q2

REPORT INFORMATION
  Report Type: Spontaneous
  Country: US (occurrence: None)
  Receive Date: 20240416
  Receipt Date: 20240416
  Transmission Date: 20240716
  Serious: No
  Sender: FDA-Public Use
  Company Number: None

PATIENT
  Age: 76 Year
  Sex: Female
  Weight: 62 kg

DRUGS (5)
  1. CAPIVASERTIB [Suspect]
     Active Substance: CAPIVASERTIB
     Indication: Breast cancer metastatic
     Dosage: OTHER FREQUENCY : BID ON DAYS 1-4;?
     Route: 048
     Dates: start: 20240401, end: 20240408
  2. LORATADINE [Concomitant]
     Active Substance: LORATADINE
     Dates: start: 20240401, end: 20240416
  3. VENLAFAXINE [Concomitant]
     Active Substance: VENLAFAXINE HYDROCHLORIDE
     Dates: start: 20220601
  4. GABAPENTIN [Concomitant]
     Active Substance: GABAPENTIN
     Dates: start: 20221003
  5. METOPROLOL [Concomitant]
     Active Substance: METOPROLOL
     Dates: start: 20220705

REACTIONS (5)
  - Rash [None]
  - Diarrhoea [None]
  - Dizziness [None]
  - Heart rate increased [None]
  - Swelling face [None]

NARRATIVE: CASE EVENT DATE: 20240409
